FAERS Safety Report 7413655-4 (Version None)
Quarter: 2011Q2

REPORT INFORMATION
  Report Type: 
  Country: None (occurrence: None)
  Receive Date: 20110413
  Receipt Date: 20110412
  Transmission Date: 20111010
  Serious: Yes (Other)
  Sender: FDA-Public Use
  Company Number: CH-PFIZER INC-2011080033

PATIENT
  Age: 87 Year
  Sex: Female

DRUGS (12)
  1. TRITTICO [Suspect]
     Dosage: 25 MG, 1X/DAY
     Route: 048
     Dates: start: 20100101, end: 20110211
  2. VALSARTAN [Concomitant]
     Dosage: 160 MG, 1X/DAY
     Route: 048
     Dates: end: 20110214
  3. TRITTICO [Suspect]
     Dosage: 25 MG, AS NEEDED
     Dates: end: 20110211
  4. ASPIRIN [Concomitant]
     Dosage: 100 MG, 1X/DAY
  5. VALSARTAN [Concomitant]
     Dosage: 80 MG, 1X/DAY
     Route: 048
     Dates: start: 20110214
  6. DISTRANEURINE [Concomitant]
     Dosage: 192 MG IN THE MORNING, 384 MG IN THE EVENING
     Route: 048
     Dates: start: 20101101, end: 20110101
  7. SEROQUEL [Suspect]
     Dosage: 12.5 MG, 2X/DAY
     Route: 048
     Dates: start: 20100819, end: 20110214
  8. DISTRANEURINE [Concomitant]
     Dosage: ADDITIONALLY TWO TIMES 192 MG PER DAY IF NEEDED
     Route: 048
     Dates: start: 20101101
  9. ZOLOFT [Suspect]
     Dosage: 25 MG, 1X/DAY
     Route: 048
     Dates: start: 20100808, end: 20110217
  10. SEROQUEL [Suspect]
     Dosage: 6.25 MG, AS NEEDED
     Dates: end: 20110214
  11. SORTIS [Suspect]
     Dosage: 10 MG, 1X/DAY
     Route: 048
     Dates: start: 20050101, end: 20110211
  12. CALCIMAGON-D3 [Concomitant]
     Dosage: 500 MG, 1X/DAY
     Route: 048
     Dates: start: 20101101

REACTIONS (2)
  - HEPATOCELLULAR INJURY [None]
  - ABNORMAL BEHAVIOUR [None]
